FAERS Safety Report 9974295 (Version 1)
Quarter: 2014Q1

REPORT INFORMATION
  Report Type: Report from Study
  Country: US (occurrence: US)
  Receive Date: 20140306
  Receipt Date: 20140306
  Transmission Date: 20141002
  Serious: No
  Sender: FDA-Public Use
  Company Number: US-ABBVIE-13P-163-1155060-00

PATIENT
  Sex: Female

DRUGS (11)
  1. HUMIRA [Suspect]
     Indication: PSORIASIS
  2. ACIPHEX [Concomitant]
     Indication: GASTRIC DISORDER
     Dosage: 20MG DAILY
  3. ZOCOR [Concomitant]
     Indication: BLOOD CHOLESTEROL
     Dosage: DAY
  4. GABAPENTIN [Concomitant]
     Indication: PAIN
  5. ATENOLOL [Concomitant]
     Indication: HYPERTENSION
     Dosage: DAY
  6. ULORIC [Concomitant]
     Indication: GOUT
     Dosage: DAY
  7. ASPIRIN [Concomitant]
     Indication: PRODUCT USED FOR UNKNOWN INDICATION
     Dosage: DAY
  8. DIOVAN [Concomitant]
     Indication: HYPERTENSION
  9. DOXAZOSIN [Concomitant]
     Indication: HYPERTENSION
     Dosage: 1MG DAILY
  10. PLAVIX [Concomitant]
     Indication: PRODUCT USED FOR UNKNOWN INDICATION
     Dosage: 75MG DAILY
  11. PLAVIX [Concomitant]
     Indication: THYROID DISORDER
     Dosage: 25MG DAILY

REACTIONS (3)
  - Thyroid disorder [Not Recovered/Not Resolved]
  - Diarrhoea [Unknown]
  - Dizziness [Unknown]
